FAERS Safety Report 20125261 (Version 1)
Quarter: 2021Q4

REPORT INFORMATION
  Report Type: Spontaneous
  Country: FR (occurrence: FR)
  Receive Date: 20211129
  Receipt Date: 20211129
  Transmission Date: 20220304
  Serious: Yes (Hospitalization)
  Sender: FDA-Public Use
  Company Number: None

PATIENT
  Age: 94 Year
  Sex: Female
  Weight: 67.65 kg

DRUGS (11)
  1. ACETAMINOPHEN [Suspect]
     Active Substance: ACETAMINOPHEN
     Indication: Product used for unknown indication
     Dosage: UNK (IMV : NOMBRE DE COMPRIM?S/MG PRIS INCONNU)
     Route: 048
     Dates: start: 20210514, end: 20210514
  2. LEVOTHYROXINE [Concomitant]
     Active Substance: LEVOTHYROXINE
     Indication: Hypothyroidism
     Dosage: 12.5 MILLIGRAM, QD
     Route: 048
  3. MOVICOL                            /01749801/ [Concomitant]
     Indication: Constipation
     Dosage: 1 DOSAGE FORM, QD (1-0-0 SI BESOIN)
     Route: 048
  4. CHOLECALCIFEROL [Concomitant]
     Active Substance: CHOLECALCIFEROL
     Indication: Arthritis
     Dosage: 1 DOSAGE FORM, QD (0-0-1)
     Route: 048
  5. ALLOPURINOL [Concomitant]
     Active Substance: ALLOPURINOL
     Indication: Gout
     Dosage: 100 MILLIGRAM, QD (1-0-0)
     Route: 048
  6. SIMBRINZA [Concomitant]
     Active Substance: BRIMONIDINE TARTRATE\BRINZOLAMIDE
     Indication: Open angle glaucoma
     Dosage: 2 DOSAGE FORM, QD
     Route: 047
  7. BIMATOPROST MYLAN PHARMA [Concomitant]
     Indication: Open angle glaucoma
     Dosage: 0.1 DOSAGE FORM, QD
     Route: 047
  8. BISOPROLOL [Concomitant]
     Active Substance: BISOPROLOL
     Indication: Hypertension
     Dosage: 2.5 MILLIGRAM, QD
     Route: 048
  9. FUROSEMIDE [Concomitant]
     Active Substance: FUROSEMIDE
     Indication: Gout
     Dosage: 40 MILLIGRAM, QD (1-0-0)
     Route: 048
  10. ELIQUIS [Concomitant]
     Active Substance: APIXABAN
     Indication: Hypertensive heart disease
     Dosage: 10 MILLIGRAM, QD (5MG  1-0-1)
     Route: 048
  11. OXAZEPAM [Concomitant]
     Active Substance: OXAZEPAM
     Indication: Depressive symptom
     Dosage: 10 MILLIGRAM, QD (0-0-1)
     Route: 048

REACTIONS (3)
  - Vomiting [Recovered/Resolved]
  - Somnolence [Recovered/Resolved]
  - Intentional overdose [Recovered/Resolved]

NARRATIVE: CASE EVENT DATE: 20210514
